FAERS Safety Report 8548979 (Version 2)
Quarter: 2012Q4

REPORT INFORMATION
  Report Type: 
  Country: FR (occurrence: FR)
  Receive Date: 20120507
  Receipt Date: 20121205
  Transmission Date: 20130627
  Serious: Yes (Hospitalization, Other)
  Sender: FDA-Public Use
  Company Number: PHHY2012FR036825

PATIENT
  Age: 29 Year
  Sex: Female
  Weight: 50 kg

DRUGS (6)
  1. CERTICAN [Suspect]
     Indication: HEART TRANSPLANT
     Dosage: 1.25 mg, two single doses at once
     Dates: start: 20081210
  2. PROGRAF [Concomitant]
     Dosage: 1 mg, BID
  3. CELLCEPT [Concomitant]
     Dosage: 750 mg, BID
  4. CORTANCYL [Concomitant]
     Dosage: 5 mg, UNK
  5. PRAVASTATIN [Concomitant]
     Dosage: 20 mg, UNK
  6. ZELITREX [Concomitant]
     Dosage: 1 g, TID

REACTIONS (9)
  - Lung disorder [Not Recovered/Not Resolved]
  - Pleural effusion [Not Recovered/Not Resolved]
  - Interstitial lung disease [Recovered/Resolved]
  - Effusion [Unknown]
  - Pneumocystis jiroveci infection [Unknown]
  - Herpes simplex [Unknown]
  - Infection [Unknown]
  - Abdominal pain [Unknown]
  - Diarrhoea [Unknown]
